FAERS Safety Report 19043912 (Version 3)
Quarter: 2021Q2

REPORT INFORMATION
  Report Type: Spontaneous
  Country: US (occurrence: US)
  Receive Date: 20210323
  Receipt Date: 20210428
  Transmission Date: 20210717
  Serious: No
  Sender: FDA-Public Use
  Company Number: US-ASTRAZENECA-2021A146104

PATIENT
  Age: 21075 Day
  Sex: Male
  Weight: 79.8 kg

DRUGS (14)
  1. PANTOPRAZOLE [Concomitant]
     Active Substance: PANTOPRAZOLE
     Indication: DYSPEPSIA
  2. CARVEDILOL. [Concomitant]
     Active Substance: CARVEDILOL
     Indication: ATRIOVENTRICULAR BLOCK
  3. SPIRIVA [Concomitant]
     Active Substance: TIOTROPIUM BROMIDE MONOHYDRATE
     Indication: EMPHYSEMA
  4. ATORVASTATIN [Concomitant]
     Active Substance: ATORVASTATIN
     Indication: BLOOD CHOLESTEROL
  5. SYMBICORT [Suspect]
     Active Substance: BUDESONIDE\FORMOTEROL FUMARATE DIHYDRATE
     Indication: EMPHYSEMA
     Dosage: 160/4.5 MCG 2 PUFFS 2 TIMES A DAY.
     Route: 055
  6. TAMSULOSIN [Concomitant]
     Active Substance: TAMSULOSIN
     Indication: PROSTATE CANCER
  7. BENAZEPRIL [Concomitant]
     Active Substance: BENAZEPRIL HYDROCHLORIDE
     Indication: BLOOD PRESSURE MEASUREMENT
  8. LIQUID ALBUTEROL [Concomitant]
     Active Substance: ALBUTEROL
     Indication: EMPHYSEMA
  9. MONTEKULAST SODIUM [Concomitant]
     Indication: EMPHYSEMA
  10. AMLODIPINE [Concomitant]
     Active Substance: AMLODIPINE BESYLATE
  11. AMLODIPINE [Concomitant]
     Active Substance: AMLODIPINE BESYLATE
     Indication: BLOOD PRESSURE MEASUREMENT
  12. TUDORZA [Suspect]
     Active Substance: ACLIDINIUM BROMIDE
     Indication: EMPHYSEMA
     Dosage: UNKNOWN
     Route: 055
  13. ASPIRIN. [Concomitant]
     Active Substance: ASPIRIN
  14. GABAPENTIN. [Concomitant]
     Active Substance: GABAPENTIN

REACTIONS (3)
  - Increased tendency to bruise [Unknown]
  - Product dose omission issue [Recovered/Resolved]
  - Device breakage [Unknown]

NARRATIVE: CASE EVENT DATE: 20210311
